FAERS Safety Report 9127436 (Version 1)
Quarter: 2013Q1

REPORT INFORMATION
  Report Type: Spontaneous
  Country: US (occurrence: US)
  Receive Date: 20130228
  Receipt Date: 20130228
  Transmission Date: 20140127
  Serious: No
  Sender: FDA-Public Use
  Company Number: US-GLAXOSMITHKLINE-A0975729A

PATIENT
  Age: 41 Year
  Sex: Female

DRUGS (2)
  1. LAMICTAL [Suspect]
     Indication: BIPOLAR DISORDER
     Dosage: 50MG AT NIGHT
     Route: 048
     Dates: start: 20120424, end: 20120426
  2. NO CONCURRENT MEDICATION [Concomitant]

REACTIONS (4)
  - Rash pruritic [Unknown]
  - Erythema [Unknown]
  - Skin warm [Unknown]
  - Urticaria [Unknown]
